FAERS Safety Report 26056008 (Version 1)
Quarter: 2025Q4

REPORT INFORMATION
  Report Type: Report from Study
  Country: US (occurrence: US)
  Receive Date: 20251118
  Receipt Date: 20251118
  Transmission Date: 20260117
  Serious: Yes (Hospitalization, Other)
  Sender: ABBVIE
  Company Number: US-ABBVIE-6546580

PATIENT
  Age: 77 Year
  Sex: Female

DRUGS (1)
  1. HUMIRA [Suspect]
     Active Substance: ADALIMUMAB
     Indication: Product used for unknown indication
     Dosage: DOSE FORM : SOLUTION FOR INJECTION IN PRE-FILLED PEN
     Route: 058
     Dates: start: 20090101

REACTIONS (5)
  - Hospitalisation [Unknown]
  - Cerebrovascular accident [Unknown]
  - Pain [Unknown]
  - Cardiac operation [Unknown]
  - Herpes zoster [Unknown]

NARRATIVE: CASE EVENT DATE: 20250929
